FAERS Safety Report 9132236 (Version 2)
Quarter: 2013Q1

REPORT INFORMATION
  Report Type: Spontaneous
  Country: BR (occurrence: BR)
  Receive Date: 20130301
  Receipt Date: 20130306
  Transmission Date: 20140127
  Serious: Yes (Other)
  Sender: FDA-Public Use
  Company Number: BR-PFIZER INC-2012309686

PATIENT
  Age: 55 Year
  Sex: Male

DRUGS (4)
  1. SUTENT [Suspect]
     Indication: RENAL CELL CARCINOMA
     Dosage: 50 MG, CYCLE 4 PER 2 (FOR TWO MONTHS)
     Route: 048
     Dates: start: 20121125
  2. NEXIUM [Concomitant]
     Indication: ABDOMINAL DISCOMFORT
  3. MOTILIUM ^JANSSEN-CILAG^ [Concomitant]
     Dosage: BEFORE BREAKFAST, LUNCH AND DINNER
  4. NUTRIDRINK [Concomitant]

REACTIONS (13)
  - Spinal disorder [Unknown]
  - Skin atrophy [Unknown]
  - Limb discomfort [Unknown]
  - Tongue disorder [Unknown]
  - Eating disorder [Unknown]
  - Decreased appetite [Unknown]
  - Fatigue [Unknown]
  - Yellow skin [Unknown]
  - Malaise [Unknown]
  - Glossodynia [Unknown]
  - Pallor [Unknown]
  - Disease progression [Unknown]
  - Renal cell carcinoma [Unknown]
